FAERS Safety Report 6544956-X (Version None)
Quarter: 2010Q1

REPORT INFORMATION
  Report Type: 
  Country: None (occurrence: None)
  Receive Date: 20100121
  Receipt Date: 20100115
  Transmission Date: 20100710
  Serious: Yes (Other)
  Sender: FDA-Public Use
  Company Number: CH-ROCHE-679964

PATIENT
  Age: 71 Year
  Sex: Female

DRUGS (6)
  1. BEVACIZUMAB [Suspect]
     Dosage: FREQUENCY: 2 WEEKS. TOTAL THREE CYCLES RECEIVED.
     Route: 042
     Dates: start: 20090901, end: 20091104
  2. TAXOL [Concomitant]
     Dates: start: 20090901, end: 20091009
  3. CALCIMAGON-D3 [Concomitant]
     Dosage: DOSE: 1500
     Route: 048
  4. VI-DE 3 [Concomitant]
     Route: 048
  5. ZURCAL [Concomitant]
     Route: 048
  6. STILNOX [Concomitant]
     Dosage: DOSE: 1/2 TABLET
     Route: 048

REACTIONS (4)
  - HYPERTENSION [None]
  - MALIGNANT NEOPLASM PROGRESSION [None]
  - OEDEMA PERIPHERAL [None]
  - POLYNEUROPATHY [None]
